FAERS Safety Report 6737520-0 (Version None)
Quarter: 2010Q2

REPORT INFORMATION
  Report Type: 
  Country: None (occurrence: None)
  Receive Date: 20100519
  Receipt Date: 20100510
  Transmission Date: 20101027
  Serious: Yes (Other)
  Sender: FDA-Public Use
  Company Number: 2010AL002807

PATIENT
  Age: 58 Year
  Sex: Female

DRUGS (3)
  1. DICLOFENAC SODIUM [Suspect]
     Indication: EXOSTOSIS
     Dosage: PO
     Route: 048
     Dates: start: 20100420, end: 20100421
  2. CELEBREX [Concomitant]
  3. MICRONOR [Concomitant]

REACTIONS (2)
  - ARTHRALGIA [None]
  - MOUTH ULCERATION [None]
